FAERS Safety Report 7512981-8 (Version None)
Quarter: 2011Q2

REPORT INFORMATION
  Report Type: 
  Country: None (occurrence: None)
  Receive Date: 20110531
  Receipt Date: 20101213
  Transmission Date: 20111010
  Serious: No
  Sender: FDA-Public Use
  Company Number: US-NOVEN-ALL1-2010-06462

PATIENT
  Sex: Female
  Weight: 49.9 kg

DRUGS (2)
  1. CLONIDINE [Concomitant]
     Dosage: UNK
     Dates: start: 20090101
  2. DAYTRANA [Suspect]
     Indication: ATTENTION DEFICIT/HYPERACTIVITY DISORDER
     Dosage: 30 MG, OTHER (SCHOOL DAYS ONLY)
     Route: 062
     Dates: start: 20101206

REACTIONS (2)
  - PRODUCT QUALITY ISSUE [None]
  - PALPITATIONS [None]
